FAERS Safety Report 6046960-7 (Version None)
Quarter: 2009Q1

REPORT INFORMATION
  Report Type: 
  Country: None (occurrence: None)
  Receive Date: 20090122
  Receipt Date: 20090112
  Transmission Date: 20090719
  Serious: Yes (Life-Threatening)
  Sender: FDA-Public Use
  Company Number: TR-ROCHE-607522

PATIENT
  Age: 17 Year
  Sex: Male

DRUGS (2)
  1. ISOTRETINOIN [Suspect]
     Dosage: 16X20 MG CAPSULES, 320 MG IN TOTAL=7MG/KG/DAY OR 8 TIMES THE PRESCRIBED DOSAGE
     Route: 065
  2. ISOTRETINOIN [Suspect]
     Route: 065

REACTIONS (1)
  - SUICIDE ATTEMPT [None]
